FAERS Safety Report 4397063-9 (Version None)
Quarter: 2004Q3

REPORT INFORMATION
  Report Type: 
  Country: None (occurrence: None)
  Receive Date: 20040708
  Receipt Date: 20031211
  Transmission Date: 20050211
  Serious: Yes (Hospitalization)
  Sender: FDA-Public Use
  Company Number: 200400117

PATIENT
  Age: 55 Year
  Sex: Female

DRUGS (1)
  1. BOTOX [Suspect]
     Indication: DYSTONIA
     Dosage: 250 UNITS PRN IM
     Route: 030
     Dates: start: 19950101, end: 20030925

REACTIONS (28)
  - ABASIA [None]
  - AXILLARY PAIN [None]
  - B-CELL LYMPHOMA [None]
  - BIOPSY SKIN ABNORMAL [None]
  - CHEST PAIN [None]
  - CHONDRITIS [None]
  - DRUG HYPERSENSITIVITY [None]
  - ERYTHEMA [None]
  - ERYTHEMA ANNULARE [None]
  - INDURATION [None]
  - INFECTION [None]
  - INJECTION SITE INDURATION [None]
  - INJECTION SITE PIGMENTATION CHANGES [None]
  - INJECTION SITE RASH [None]
  - INJECTION SITE REACTION [None]
  - LYMPHADENOPATHY [None]
  - LYMPHOCYTIC INFILTRATION [None]
  - NECK PAIN [None]
  - OEDEMA PERIPHERAL [None]
  - PAIN [None]
  - PAIN IN EXTREMITY [None]
  - PALLOR [None]
  - POLYARTHRITIS [None]
  - PURPURA [None]
  - RASH PAPULAR [None]
  - SAPHO SYNDROME [None]
  - SPLENOMEGALY [None]
  - TENOSYNOVITIS [None]
